FAERS Safety Report 6742292-X (Version None)
Quarter: 2010Q2

REPORT INFORMATION
  Report Type: 
  Country: None (occurrence: None)
  Receive Date: 20100526
  Receipt Date: 20100521
  Transmission Date: 20101027
  Serious: Yes (Hospitalization)
  Sender: FDA-Public Use
  Company Number: US-ABBOTT-10P-163-0646315-00

PATIENT
  Sex: Female
  Weight: 72.64 kg

DRUGS (5)
  1. HUMIRA [Suspect]
     Indication: COLITIS ULCERATIVE
     Route: 058
     Dates: start: 20091201
  2. HUMIRA [Suspect]
     Indication: CROHN'S DISEASE
  3. SYNTHROID [Concomitant]
     Indication: HYPOTHYROIDISM
  4. PROPRANOLOL [Concomitant]
     Indication: HYPERTENSION
  5. BENZAPRIL [Concomitant]
     Indication: HYPERTENSION

REACTIONS (2)
  - COLITIS ULCERATIVE [None]
  - HAEMOGLOBIN DECREASED [None]
